FAERS Safety Report 11980491 (Version 4)
Quarter: 2018Q1

REPORT INFORMATION
  Report Type: Spontaneous
  Country: US (occurrence: US)
  Receive Date: 20160129
  Receipt Date: 20180307
  Transmission Date: 20180508
  Serious: No
  Sender: FDA-Public Use
  Company Number: US-PFIZER INC-2016045194

PATIENT
  Age: 43 Year
  Sex: Female
  Weight: 99 kg

DRUGS (4)
  1. LYRICA [Suspect]
     Active Substance: PREGABALIN
     Indication: INTERVERTEBRAL DISC DISPLACEMENT
  2. LYRICA [Suspect]
     Active Substance: PREGABALIN
     Indication: NERVE INJURY
  3. LYRICA [Suspect]
     Active Substance: PREGABALIN
     Indication: SCIATIC NERVE INJURY
     Dosage: 75 MG, 2X/DAY
     Route: 048
     Dates: start: 2008, end: 2010
  4. LYRICA [Suspect]
     Active Substance: PREGABALIN
     Indication: NEUROPATHY PERIPHERAL
     Dosage: 75 MG 1-2 CAPSULES AT BEDTIME
     Route: 048
     Dates: start: 201601

REACTIONS (4)
  - Restless legs syndrome [Unknown]
  - Condition aggravated [Unknown]
  - Sciatic nerve injury [Unknown]
  - Back pain [Unknown]

NARRATIVE: CASE EVENT DATE: 2009
